FAERS Safety Report 7281010-6 (Version None)
Quarter: 2011Q1

REPORT INFORMATION
  Report Type: 
  Country: None (occurrence: None)
  Receive Date: 20110208
  Receipt Date: 20110131
  Transmission Date: 20110831
  Serious: Yes (Death, Other)
  Sender: FDA-Public Use
  Company Number: CHPA2011US01897

PATIENT
  Age: 10 Year
  Sex: Male

DRUGS (10)
  1. METHYLPHENIDATE [Suspect]
     Route: 048
  2. ATOMOXETINE HYDROCHLORIDE [Suspect]
     Route: 048
  3. OMEPRAZOLE [Suspect]
     Route: 048
  4. LORATADINE [Suspect]
     Route: 048
  5. QUETIAPINE [Suspect]
     Route: 048
  6. VALPROIC ACID [Suspect]
     Route: 048
  7. RISPERIDONE [Suspect]
     Route: 048
  8. CLONAZEPAM [Suspect]
     Route: 048
  9. LORAZEPAM [Suspect]
     Route: 048
  10. ALPRAZOLAM [Suspect]
     Route: 048

REACTIONS (2)
  - DEATH [None]
  - CARDIO-RESPIRATORY ARREST [None]
